FAERS Safety Report 6967708-5 (Version None)
Quarter: 2010Q3

REPORT INFORMATION
  Report Type: 
  Country: None (occurrence: None)
  Receive Date: 20100907
  Receipt Date: 20100823
  Transmission Date: 20110219
  Serious: No
  Sender: FDA-Public Use
  Company Number: US-PFIZER INC-2010106401

PATIENT
  Age: 76 Year
  Sex: Female

DRUGS (4)
  1. DOXAZOSIN MESYLATE [Suspect]
     Indication: HYPERTENSION
     Dosage: 2 MG, 1X/DAY
     Route: 048
     Dates: start: 20100601
  2. NEBIVOLOL [Suspect]
     Indication: HYPERTENSION
     Dosage: 10 MG, 2X/DAY
     Dates: start: 20100501
  3. NEXIUM [Concomitant]
     Indication: GASTROOESOPHAGEAL REFLUX DISEASE
     Dosage: UNK
  4. XANAX [Concomitant]
     Dosage: 0.125 MG, AS NEEDED
     Route: 048

REACTIONS (1)
  - HYPERHIDROSIS [None]
